FAERS Safety Report 5422340-X (Version None)
Quarter: 2007Q3

REPORT INFORMATION
  Report Type: 
  Country: None (occurrence: None)
  Receive Date: 20070822
  Receipt Date: 20070809
  Transmission Date: 20080115
  Serious: Yes (Other)
  Sender: FDA-Public Use
  Company Number: US-ELI_LILLY_AND_COMPANY-US200708001991

PATIENT
  Age: 52 Year
  Sex: Female

DRUGS (3)
  1. EVISTA [Suspect]
     Indication: OSTEOPENIA
     Dosage: 60 MG, UNK
     Route: 048
     Dates: start: 20070609, end: 20070801
  2. CALCIUM CARBONATE [Concomitant]
  3. MULTIVITAMIN [Concomitant]

REACTIONS (1)
  - GINGIVAL DISCOLOURATION [None]
